FAERS Safety Report 19494069 (Version 5)
Quarter: 2021Q4

REPORT INFORMATION
  Report Type: Spontaneous
  Country: FR (occurrence: FR)
  Receive Date: 20210706
  Receipt Date: 20211201
  Transmission Date: 20220303
  Serious: Yes (Death, Life-Threatening, Hospitalization, Other)
  Sender: FDA-Public Use
  Company Number: FR-RECORDATI-2021002314

PATIENT
  Age: 89 Year
  Sex: Male
  Weight: 82 kg

DRUGS (23)
  1. AZITHROMYCIN [Interacting]
     Active Substance: AZITHROMYCIN
     Indication: COVID-19
     Dosage: UNK
     Route: 065
  2. AZITHROMYCIN [Interacting]
     Active Substance: AZITHROMYCIN
     Indication: Antibiotic therapy
  3. AMOXICILLIN [Suspect]
     Active Substance: AMOXICILLIN
     Indication: Antibiotic therapy
     Dosage: UNK
     Route: 065
  4. BISOPROLOL [Suspect]
     Active Substance: BISOPROLOL
     Indication: Cardiac valve disease
     Dosage: UNK
     Route: 065
  5. BISOPROLOL [Suspect]
     Active Substance: BISOPROLOL
     Indication: Atrial fibrillation
  6. FUROSEMIDE [Suspect]
     Active Substance: FUROSEMIDE
     Indication: Hypertension
     Dosage: UNK
     Route: 065
  7. ENOXAPARIN [Suspect]
     Active Substance: ENOXAPARIN
     Indication: International normalised ratio fluctuation
     Dosage: 8000 INTERNATIONAL UNIT, ONCE A DAY
     Route: 065
  8. ENOXAPARIN [Suspect]
     Active Substance: ENOXAPARIN
     Indication: Anticoagulant therapy
     Dosage: 200 INTERNATIONAL UNIT/KILOGRAM, ONCE A DAY
     Route: 058
  9. RAMIPRIL [Suspect]
     Active Substance: RAMIPRIL
     Indication: Hypertension
     Dosage: UNK
     Route: 065
  10. RAMIPRIL [Suspect]
     Active Substance: RAMIPRIL
     Indication: Cardiac valve disease
  11. SPIRAMYCIN [Suspect]
     Active Substance: SPIRAMYCIN
     Indication: COVID-19
     Dosage: UNK
     Route: 065
  12. SPIRAMYCIN [Suspect]
     Active Substance: SPIRAMYCIN
     Indication: Antibiotic therapy
  13. VITAMIN K [Suspect]
     Active Substance: PHYTONADIONE
     Indication: International normalised ratio increased
     Dosage: 5 MILLIGRAM
     Route: 042
  14. VITAMIN K [Suspect]
     Active Substance: PHYTONADIONE
     Indication: Coagulation factor V level increased
  15. VITAMIN K [Suspect]
     Active Substance: PHYTONADIONE
     Indication: Anticoagulant therapy
  16. WARFARIN [Interacting]
     Active Substance: WARFARIN
     Indication: Cardiac valve disease
     Dosage: 5 MILLIGRAM, ONCE A DAY
     Route: 065
  17. WARFARIN [Interacting]
     Active Substance: WARFARIN
     Indication: Atrial fibrillation
  18. CEFOTAXIME [Concomitant]
     Active Substance: CEFOTAXIME SODIUM
     Indication: COVID-19
     Dosage: UNK
     Route: 065
  19. CEFOTAXIME [Concomitant]
     Active Substance: CEFOTAXIME SODIUM
     Indication: Antibiotic therapy
  20. TINZAPARIN [Concomitant]
     Active Substance: TINZAPARIN
     Indication: Product used for unknown indication
  21. TINZAPARIN [Concomitant]
     Active Substance: TINZAPARIN
     Indication: Coagulopathy
  22. DEXAMETHASONE [Concomitant]
     Active Substance: DEXAMETHASONE
     Indication: COVID-19 pneumonia
     Dosage: 6 MILLIGRAM, ONCE A DAY
     Route: 065
  23. OXYGEN [Concomitant]
     Active Substance: OXYGEN

REACTIONS (24)
  - Septic shock [Fatal]
  - Pneumonia [Fatal]
  - Condition aggravated [Fatal]
  - Pulmonary embolism [Recovering/Resolving]
  - Labelled drug-drug interaction medication error [Recovering/Resolving]
  - International normalised ratio increased [Unknown]
  - Epistaxis [Recovered/Resolved]
  - Drug half-life increased [Recovered/Resolved]
  - Drug interaction [Recovered/Resolved]
  - Drug hypersensitivity [Unknown]
  - Off label use [Recovering/Resolving]
  - Overdose [Recovering/Resolving]
  - Drug ineffective [Recovering/Resolving]
  - Pulmonary oedema [Recovering/Resolving]
  - Hypoxia [Recovering/Resolving]
  - Pulmonary congestion [Recovering/Resolving]
  - Heart sounds abnormal [Recovering/Resolving]
  - Fibrin D dimer increased [Recovering/Resolving]
  - Coagulation factor V level increased [Recovering/Resolving]
  - Haemoglobin decreased [Recovering/Resolving]
  - Blood fibrinogen increased [Recovering/Resolving]
  - Rales [Recovering/Resolving]
  - Haemorrhage [Recovering/Resolving]
  - Coagulopathy [Unknown]
